FAERS Safety Report 25684304 (Version 1)
Quarter: 2025Q3

REPORT INFORMATION
  Report Type: Report from Study
  Country: CA (occurrence: CA)
  Receive Date: 20250815
  Receipt Date: 20250815
  Transmission Date: 20251021
  Serious: Yes (Other)
  Sender: SAMSUNG BIOEPIS
  Company Number: CA-SAMSUNG BIOEPIS-SB-2025-27324

PATIENT
  Age: 63 Year
  Sex: Female

DRUGS (4)
  1. HADLIMA [Suspect]
     Active Substance: ADALIMUMAB-BWWD
     Indication: Rheumatoid arthritis
     Dosage: 40 MG/0.4ML;
     Dates: start: 20240916
  2. PREDNISONE [Suspect]
     Active Substance: PREDNISONE
     Indication: Product used for unknown indication
  3. METHOTREXATE [Concomitant]
     Active Substance: METHOTREXATE
     Indication: Product used for unknown indication
  4. FOLIC ACID [Concomitant]
     Active Substance: FOLIC ACID
     Indication: Product used for unknown indication

REACTIONS (6)
  - Polycystic ovarian syndrome [Unknown]
  - Disease progression [Unknown]
  - Blood testosterone increased [Unknown]
  - Mass [Unknown]
  - Tendonitis [Unknown]
  - Hair growth abnormal [Unknown]
